FAERS Safety Report 15462368 (Version 1)
Quarter: 2018Q4

REPORT INFORMATION
  Report Type: Other
  Country: US (occurrence: US)
  Receive Date: 20181004
  Receipt Date: 20181004
  Transmission Date: 20190204
  Serious: No
  Sender: FDA-Public Use
  Company Number: US-ALEMBIC PHARMACUETICALS LIMITED-2018SCAL000699

PATIENT

DRUGS (1)
  1. MODAFINIL. [Suspect]
     Active Substance: MODAFINIL
     Indication: CIRCADIAN RHYTHM SLEEP DISORDER
     Dosage: BOTTLE 30

REACTIONS (3)
  - Irritability [Unknown]
  - Aggression [Unknown]
  - Fatigue [Unknown]
